FAERS Safety Report 5163425-5 (Version None)
Quarter: 2006Q4

REPORT INFORMATION
  Report Type: 
  Country: None (occurrence: None)
  Receive Date: 20061121
  Receipt Date: 20061024
  Transmission Date: 20070319
  Serious: Yes (Death)
  Sender: FDA-Public Use
  Company Number: PAR_1013_2006

PATIENT
  Age: 43 Year

DRUGS (3)
  1. VALPROIC ACID [Suspect]
     Dosage: DF PO
     Route: 048
  2. COCAINE [Suspect]
     Dosage: DF
  3. QUETIAPINE FUMARATE [Suspect]
     Dosage: DF

REACTIONS (4)
  - CARDIAC ARREST [None]
  - INTENTIONAL DRUG MISUSE [None]
  - POISONING [None]
  - RESPIRATORY ARREST [None]
